FAERS Safety Report 5616318-0 (Version None)
Quarter: 2008Q1

REPORT INFORMATION
  Report Type: 
  Country: None (occurrence: None)
  Receive Date: 20080204
  Receipt Date: 20080125
  Transmission Date: 20080703
  Serious: Yes (Life-Threatening, Hospitalization, Other)
  Sender: FDA-Public Use
  Company Number: 023284

PATIENT
  Age: 47 Year
  Sex: Male
  Weight: 79 kg

DRUGS (7)
  1. METFORMIN HYDROCHLORIDE [Suspect]
     Indication: TYPE 2 DIABETES MELLITUS
     Dosage: 1000 MG, BID, ORAL
     Route: 048
  2. DIVALPROEX SODIUM [Concomitant]
  3. CITALOPRAM HYDROBROMIDE [Concomitant]
  4. CLONAZEPAM [Concomitant]
  5. MORPHINE SULFATE [Concomitant]
  6. OXYCODONE HCL [Concomitant]
  7. PENICILLIN G [Concomitant]

REACTIONS (6)
  - ACUTE HEPATIC FAILURE [None]
  - CARDIAC ENZYMES INCREASED [None]
  - LACTIC ACIDOSIS [None]
  - RENAL FAILURE ACUTE [None]
  - RENAL TUBULAR NECROSIS [None]
  - UNRESPONSIVE TO STIMULI [None]
